FAERS Safety Report 17339357 (Version 5)
Quarter: 2021Q1

REPORT INFORMATION
  Report Type: Spontaneous
  Country: US (occurrence: US)
  Receive Date: 20200129
  Receipt Date: 20210120
  Transmission Date: 20210419
  Serious: Yes (Death, Hospitalization)
  Sender: FDA-Public Use
  Company Number: US-PFIZER INC-2020039085

PATIENT
  Age: 86 Year
  Sex: Male
  Weight: 144 kg

DRUGS (2)
  1. SUTENT [Suspect]
     Active Substance: SUNITINIB MALATE
     Indication: LUNG NEOPLASM MALIGNANT
  2. SUTENT [Suspect]
     Active Substance: SUNITINIB MALATE
     Indication: GASTROINTESTINAL STROMAL TUMOUR
     Dosage: 50 MG, 1X/DAY
     Dates: start: 20190904

REACTIONS (2)
  - Death [Fatal]
  - Dehydration [Unknown]

NARRATIVE: CASE EVENT DATE: 20190904
